FAERS Safety Report 17502620 (Version 2)
Quarter: 2021Q2

REPORT INFORMATION
  Report Type: Report from Study
  Country: US (occurrence: US)
  Receive Date: 20200305
  Receipt Date: 20210616
  Transmission Date: 20210716
  Serious: No
  Sender: FDA-Public Use
  Company Number: US-BAYER-2020-033873

PATIENT
  Age: 74 Year
  Sex: Female

DRUGS (2)
  1. BETASERON [Suspect]
     Active Substance: INTERFERON BETA-1B
     Indication: RELAPSING-REMITTING MULTIPLE SCLEROSIS
     Dosage: 8 MIU, QOD
     Route: 058
     Dates: start: 20041110
  2. BETACONNECT [Suspect]
     Active Substance: DEVICE
     Dosage: UNK

REACTIONS (3)
  - Product dose omission issue [None]
  - Device use issue [None]
  - Nasopharyngitis [Not Recovered/Not Resolved]

NARRATIVE: CASE EVENT DATE: 20200223
